FAERS Safety Report 5972635-6 (Version None)
Quarter: 2008Q4

REPORT INFORMATION
  Report Type: 
  Country: None (occurrence: None)
  Receive Date: 20081126
  Receipt Date: 20081126
  Transmission Date: 20090506
  Serious: No
  Sender: FDA-Public Use
  Company Number: None

PATIENT
  Age: 51 Year
  Sex: Female
  Weight: 65.7716 kg

DRUGS (1)
  1. CARDIZEM CD [Suspect]
     Indication: HYPERTENSION
     Dosage: 1 CAPSULE ONCE DAILY
     Dates: start: 20081105, end: 20081114

REACTIONS (3)
  - RASH [None]
  - RASH PRURITIC [None]
  - SKIN DISCOLOURATION [None]
